FAERS Safety Report 10704206 (Version 1)
Quarter: 2015Q1

REPORT INFORMATION
  Report Type: Spontaneous
  Country: US (occurrence: None)
  Receive Date: 20150109
  Receipt Date: 20150109
  Transmission Date: 20150721
  Serious: Yes (Other)
  Sender: FDA-Public Use
  Company Number: None

PATIENT
  Age: 73 Year
  Sex: Male

DRUGS (1)
  1. CELLCEPT [Suspect]
     Active Substance: MYCOPHENOLATE MOFETIL\MYCOPHENOLATE MOFETIL HYDROCHLORIDE
     Indication: MYASTHENIA GRAVIS
     Dosage: STRENGTH: 500MG, DOSE FORM: ORAL, ROUTE: ORAL 047, FREQUENCY: BID
     Route: 048

REACTIONS (2)
  - Diarrhoea [None]
  - Arthralgia [None]

NARRATIVE: CASE EVENT DATE: 20150106
